FAERS Safety Report 20156571 (Version 2)
Quarter: 2021Q4

REPORT INFORMATION
  Report Type: Spontaneous
  Country: US (occurrence: US)
  Receive Date: 20211207
  Receipt Date: 20211214
  Transmission Date: 20220304
  Serious: Yes (Hospitalization, Other)
  Sender: FDA-Public Use
  Company Number: US-BRISTOL-MYERS SQUIBB COMPANY-BMS-2021-131327

PATIENT
  Age: 62 Year
  Sex: Female
  Weight: 131.07 kg

DRUGS (1)
  1. ORENCIA [Suspect]
     Active Substance: ABATACEPT
     Indication: Rheumatoid arthritis
     Dosage: 125 MILLIGRAM, QWK
     Route: 058
     Dates: start: 20210108

REACTIONS (9)
  - Pneumonia [Unknown]
  - Sepsis [Unknown]
  - Dyspnoea [Unknown]
  - Weight increased [Unknown]
  - Fluid retention [Unknown]
  - Cough [Unknown]
  - Clubbing [Unknown]
  - Oedema peripheral [Unknown]
  - Ascites [Unknown]

NARRATIVE: CASE EVENT DATE: 20211124
